FAERS Safety Report 6752410-5 (Version None)
Quarter: 2010Q2

REPORT INFORMATION
  Report Type: 
  Country: None (occurrence: None)
  Receive Date: 20100601
  Receipt Date: 20100601
  Transmission Date: 20101027
  Serious: Yes (Other)
  Sender: FDA-Public Use
  Company Number: None

PATIENT
  Age: 63 Year
  Sex: Male
  Weight: 120.2032 kg

DRUGS (2)
  1. LOSARTAN POTASSIUM [Suspect]
     Indication: HYPERTENSION
     Dosage: 100MB DAILY PO
     Route: 048
     Dates: start: 20100514, end: 20100530
  2. COZAAR [Suspect]

REACTIONS (4)
  - ASTHENIA [None]
  - FATIGUE [None]
  - MYALGIA [None]
  - PRODUCT SUBSTITUTION ISSUE [None]
